FAERS Safety Report 15372150 (Version 4)
Quarter: 2019Q1

REPORT INFORMATION
  Report Type: Report from Study
  Country: US (occurrence: US)
  Receive Date: 20180911
  Receipt Date: 20190306
  Transmission Date: 20190417
  Serious: No
  Sender: FDA-Public Use
  Company Number: PHEH2018US037428

PATIENT
  Age: 36 Year
  Sex: Female

DRUGS (1)
  1. COSENTYX [Suspect]
     Active Substance: SECUKINUMAB
     Indication: PSORIASIS
     Dosage: 300 MG, QMO
     Route: 058
     Dates: start: 20171115

REACTIONS (9)
  - Contusion [Recovering/Resolving]
  - Malaise [Recovered/Resolved]
  - Injection site mass [Recovered/Resolved]
  - Migraine [Recovering/Resolving]
  - Dyspnoea [Unknown]
  - Injection site pain [Recovered/Resolved]
  - Fatigue [Unknown]
  - Injection site vesicles [Unknown]
  - Device issue [Unknown]

NARRATIVE: CASE EVENT DATE: 20171115
